FAERS Safety Report 22058983 (Version 1)
Quarter: 2023Q1

REPORT INFORMATION
  Report Type: Other
  Country: TR (occurrence: None)
  Receive Date: 20230303
  Receipt Date: 20230303
  Transmission Date: 20230418
  Serious: Yes (Death)
  Sender: FDA-Public Use
  Company Number: TR-ROCHE-3297325

PATIENT

DRUGS (4)
  1. RITUXIMAB [Suspect]
     Active Substance: RITUXIMAB
     Indication: Rheumatic disorder
     Route: 042
  2. ACETAMINOPHEN [Concomitant]
     Active Substance: ACETAMINOPHEN
  3. METHYLPREDNISOLONE [Concomitant]
     Active Substance: METHYLPREDNISOLONE
  4. PHENIRAMINE [Concomitant]
     Active Substance: PHENIRAMINE

REACTIONS (1)
  - COVID-19 pneumonia [Fatal]
